FAERS Safety Report 6311183-0 (Version None)
Quarter: 2009Q3

REPORT INFORMATION
  Report Type: 
  Country: None (occurrence: None)
  Receive Date: 20090817
  Receipt Date: 20090806
  Transmission Date: 20100115
  Serious: Yes (Other)
  Sender: FDA-Public Use
  Company Number: US-AMGEN-QUU359009

PATIENT
  Sex: Female

DRUGS (1)
  1. ENBREL [Suspect]
     Indication: ANKYLOSING SPONDYLITIS
     Route: 058
     Dates: start: 20090512, end: 20090526

REACTIONS (6)
  - INJECTION SITE ERYTHEMA [None]
  - INJECTION SITE SWELLING [None]
  - INJECTION SITE WARMTH [None]
  - JOINT SWELLING [None]
  - LIP SWELLING [None]
  - SWELLING FACE [None]
